FAERS Safety Report 7434820-6 (Version None)
Quarter: 2011Q2

REPORT INFORMATION
  Report Type: 
  Country: None (occurrence: None)
  Receive Date: 20110425
  Receipt Date: 20110421
  Transmission Date: 20111010
  Serious: No
  Sender: FDA-Public Use
  Company Number: US-PFIZER INC-2011087756

PATIENT
  Sex: Male
  Weight: 77.098 kg

DRUGS (7)
  1. TERAZOSIN [Concomitant]
     Indication: PROSTATOMEGALY
     Dosage: 2 MG, UNK
  2. LIPITOR [Suspect]
     Dosage: 20 MG, UNK
     Route: 048
     Dates: end: 20110401
  3. CIPRO [Suspect]
     Indication: INFLUENZA
     Dosage: UNK
     Dates: end: 20110401
  4. HYZAAR [Concomitant]
     Indication: HYPERTENSION
     Dosage: 50/12.5 MG
  5. LIPITOR [Suspect]
     Indication: BLOOD CHOLESTEROL INCREASED
     Dosage: 10 MG, UNK
  6. CIPRO [Suspect]
     Indication: INFECTION
  7. METOPROLOL [Concomitant]
     Indication: HYPERTENSION
     Dosage: 25 MG, UNK

REACTIONS (2)
  - ASTHENIA [None]
  - PAIN IN EXTREMITY [None]
